FAERS Safety Report 5795802-3 (Version None)
Quarter: 2008Q3

REPORT INFORMATION
  Report Type: 
  Country: None (occurrence: None)
  Receive Date: 20080701
  Receipt Date: 20080521
  Transmission Date: 20090109
  Serious: No
  Sender: FDA-Public Use
  Company Number: US-BAYER-200823619NA

PATIENT
  Sex: Female
  Weight: 52 kg

DRUGS (2)
  1. ULTRAVIST 370 [Suspect]
     Indication: COMPUTERISED TOMOGRAM
     Route: 042
  2. CONTRAST MEDIA [Concomitant]
     Indication: COMPUTERISED TOMOGRAM
     Route: 048

REACTIONS (1)
  - URTICARIA [None]
